FAERS Safety Report 8373172-4 (Version None)
Quarter: 2012Q2

REPORT INFORMATION
  Report Type: 
  Country: None (occurrence: None)
  Receive Date: 20120521
  Receipt Date: 20120515
  Transmission Date: 20120825
  Serious: Yes (Death, Life-Threatening, Hospitalization)
  Sender: FDA-Public Use
  Company Number: CH-ASTRAZENECA-2012SE31558

PATIENT
  Age: 68 Year
  Sex: Female

DRUGS (4)
  1. METHYLPREDNISOLONE [Suspect]
     Indication: INTERSTITIAL LUNG DISEASE
     Route: 041
     Dates: start: 20120320, end: 20120415
  2. CORDARONE [Suspect]
     Indication: ARRHYTHMIA
     Route: 048
     Dates: end: 20120101
  3. CRESTOR [Suspect]
     Indication: CORONARY ARTERY DISEASE
     Route: 048
     Dates: end: 20120101
  4. CRESTOR [Suspect]
     Indication: HYPERLIPIDAEMIA
     Route: 048
     Dates: end: 20120101

REACTIONS (6)
  - ACUTE INTERSTITIAL PNEUMONITIS [None]
  - PSEUDOMONAS INFECTION [None]
  - VIRAL INFECTION [None]
  - ACUTE RESPIRATORY DISTRESS SYNDROME [None]
  - STAPHYLOCOCCAL INFECTION [None]
  - MYOPATHY [None]
